FAERS Safety Report 6120624-3 (Version None)
Quarter: 2009Q1

REPORT INFORMATION
  Report Type: 
  Country: None (occurrence: None)
  Receive Date: 20090312
  Receipt Date: 20090312
  Transmission Date: 20090719
  Serious: Yes (Other)
  Sender: FDA-Public Use
  Company Number: None

PATIENT
  Sex: Male
  Weight: 86.1834 kg

DRUGS (1)
  1. METOCLOPRAMIDE 10MG TAB [Suspect]
     Indication: GASTROOESOPHAGEAL REFLUX DISEASE
     Dosage: 10MG TAB DAILY PO
     Route: 048
     Dates: start: 20050522, end: 20070913

REACTIONS (3)
  - DEPRESSION SUICIDAL [None]
  - TARDIVE DYSKINESIA [None]
  - TONGUE HAEMORRHAGE [None]
